FAERS Safety Report 7877265-7 (Version None)
Quarter: 2011Q4

REPORT INFORMATION
  Report Type: 
  Country: None (occurrence: None)
  Receive Date: 20111031
  Receipt Date: 20111021
  Transmission Date: 20120403
  Serious: Yes (Hospitalization)
  Sender: FDA-Public Use
  Company Number: US-ASTRAZENECA-2011SE64020

PATIENT
  Age: 81 Year
  Sex: Female

DRUGS (2)
  1. TRICOR [Concomitant]
  2. CRESTOR [Suspect]
     Route: 048

REACTIONS (4)
  - OEDEMA [None]
  - CELLULITIS [None]
  - LOCALISED INFECTION [None]
  - MALAISE [None]
